FAERS Safety Report 5312114-2 (Version None)
Quarter: 2007Q2

REPORT INFORMATION
  Report Type: 
  Country: None (occurrence: None)
  Receive Date: 20070430
  Receipt Date: 20060615
  Transmission Date: 20071010
  Serious: No
  Sender: FDA-Public Use
  Company Number: 2006UW12854

PATIENT
  Age: 48 Year
  Sex: Male
  Weight: 76.2 kg

DRUGS (5)
  1. NEXIUM [Suspect]
     Indication: BACTERIAL INFECTION
     Dates: start: 20051201, end: 20060104
  2. UNSPECIFIED MEDICATION [Concomitant]
  3. FLONASE [Concomitant]
  4. MUCINEX [Concomitant]
  5. ZYRTEC [Concomitant]

REACTIONS (1)
  - DRUG SCREEN POSITIVE [None]
